FAERS Safety Report 6941947-1 (Version None)
Quarter: 2010Q3

REPORT INFORMATION
  Report Type: 
  Country: None (occurrence: None)
  Receive Date: 20100826
  Receipt Date: 20100816
  Transmission Date: 20110219
  Serious: Yes (Hospitalization)
  Sender: FDA-Public Use
  Company Number: US-JNJFOC-20100607534

PATIENT
  Sex: Male
  Weight: 82.1 kg

DRUGS (17)
  1. REMICADE [Suspect]
     Indication: RHEUMATOID ARTHRITIS
     Route: 042
  2. REMICADE [Suspect]
     Route: 042
  3. CYMBALTA [Suspect]
     Indication: PRODUCT USED FOR UNKNOWN INDICATION
  4. ANTIBIOTIC [Suspect]
     Indication: URINARY TRACT INFECTION
  5. SOLU-CORTEF [Concomitant]
     Indication: PREMEDICATION
  6. METHOTREXATE [Concomitant]
  7. PIROXICAM [Concomitant]
  8. LOPID [Concomitant]
  9. CARDURA [Concomitant]
  10. MULTI-VITAMINS [Concomitant]
  11. LOVAZA [Concomitant]
  12. ASCORBIC ACID [Concomitant]
  13. TOCOPHEROL CONCENTRATE CAP [Concomitant]
  14. RESTASIS [Concomitant]
  15. FINASTERIDE [Concomitant]
  16. HYZAAR [Concomitant]
     Dosage: 12.5 MG-50 MG PER DAY
  17. LYRICA [Concomitant]

REACTIONS (3)
  - ACUTE RESPIRATORY DISTRESS SYNDROME [None]
  - PNEUMONIA [None]
  - RESTRICTIVE PULMONARY DISEASE [None]
